FAERS Safety Report 25181187 (Version 2)
Quarter: 2025Q3

REPORT INFORMATION
  Report Type: Spontaneous
  Country: EU (occurrence: EU)
  Receive Date: 20250410
  Receipt Date: 20250721
  Transmission Date: 20251021
  Serious: Yes (Other)
  Sender: GLAXOSMITHKLINE
  Company Number: None

PATIENT
  Age: 30 Year
  Sex: Male

DRUGS (3)
  1. LAMICTAL [Suspect]
     Active Substance: LAMOTRIGINE
     Indication: Epilepsy
     Dosage: 200 MG, BID
  2. VALPROATE SODIUM [Concomitant]
     Active Substance: VALPROATE SODIUM
     Indication: Epilepsy
     Dosage: 1000 MG, BID
  3. Temesta [Concomitant]
     Indication: Sleep disorder
     Dosage: 2.5 MG, QD

REACTIONS (2)
  - Cerebellar syndrome [Recovering/Resolving]
  - Hyperammonaemia [Recovering/Resolving]

NARRATIVE: CASE EVENT DATE: 20231201
